FAERS Safety Report 5132208-4 (Version None)
Quarter: 2006Q4

REPORT INFORMATION
  Report Type: 
  Country: None (occurrence: None)
  Receive Date: 20061017
  Receipt Date: 20061010
  Transmission Date: 20070319
  Serious: Yes (Hospitalization)
  Sender: FDA-Public Use
  Company Number: S06-USA-03022-01

PATIENT
  Age: 80 Year
  Sex: Male
  Weight: 60.3284 kg

DRUGS (4)
  1. LEXAPRO [Suspect]
     Indication: DEPRESSION
     Dosage: 10 MG QD PO
     Route: 048
     Dates: start: 20060728, end: 20060803
  2. DIOVAN [Concomitant]
  3. CARDURA [Concomitant]
  4. LOPRESSOR [Concomitant]

REACTIONS (11)
  - BLOOD CHLORIDE DECREASED [None]
  - BLOOD CREATINE PHOSPHOKINASE INCREASED [None]
  - BLOOD CREATINE PHOSPHOKINASE MB INCREASED [None]
  - BLOOD GLUCOSE INCREASED [None]
  - BRADYCARDIA [None]
  - CHEST PAIN [None]
  - EPIGASTRIC DISCOMFORT [None]
  - HICCUPS [None]
  - HYPONATRAEMIA [None]
  - MUSCLE SPASMS [None]
  - VOMITING [None]
